FAERS Safety Report 19348846 (Version 1)
Quarter: 2021Q2

REPORT INFORMATION
  Report Type: Spontaneous
  Country: US (occurrence: US)
  Receive Date: 20210528
  Receipt Date: 20210528
  Transmission Date: 20210717
  Serious: Yes (Other)
  Sender: FDA-Public Use
  Company Number: None

PATIENT
  Age: 21 Year
  Sex: Female
  Weight: 130.5 kg

DRUGS (1)
  1. ICY HOT ORIGINAL FOAM [Suspect]
     Active Substance: MENTHOL
     Route: 061

REACTIONS (2)
  - Application site burn [None]
  - Urticaria [None]

NARRATIVE: CASE EVENT DATE: 20210528
